FAERS Safety Report 8458067 (Version 4)
Quarter: 2013Q1

REPORT INFORMATION
  Report Type: Report from Study
  Country: US (occurrence: US)
  Receive Date: 20120314
  Receipt Date: 20130130
  Transmission Date: 20140127
  Serious: Yes (Other)
  Sender: FDA-Public Use
  Company Number: US-BAYER-2012-009339

PATIENT
  Age: 70 Year
  Sex: Female

DRUGS (4)
  1. NEXAVAR [Suspect]
     Indication: RENAL CANCER
     Dosage: 400 MG, BID
     Route: 048
     Dates: start: 20120101, end: 20120204
  2. NEXAVAR [Suspect]
     Indication: RENAL CANCER
     Dosage: 400 MG, QD
     Route: 048
     Dates: start: 20120227
  3. NEXAVAR [Suspect]
     Indication: RENAL CANCER
     Dosage: 400 MG, QOD
     Route: 048
     Dates: start: 20120113
  4. ANTIHYPERTENSIVES [Concomitant]
     Dosage: UNK

REACTIONS (25)
  - Adverse drug reaction [None]
  - Diarrhoea [Recovering/Resolving]
  - Blood pressure increased [Recovering/Resolving]
  - Paraesthesia [Not Recovered/Not Resolved]
  - Rash macular [Not Recovered/Not Resolved]
  - Oral pain [Recovering/Resolving]
  - Rash [Not Recovered/Not Resolved]
  - Erythema [Not Recovered/Not Resolved]
  - Dry mouth [Not Recovered/Not Resolved]
  - Glossodynia [Not Recovered/Not Resolved]
  - Rash [None]
  - Palmar-plantar erythrodysaesthesia syndrome [Recovering/Resolving]
  - Blister [Recovering/Resolving]
  - Hyperaesthesia [Recovering/Resolving]
  - Local swelling [Recovering/Resolving]
  - Pain in extremity [Recovering/Resolving]
  - Pain of skin [Recovering/Resolving]
  - Dry skin [Recovering/Resolving]
  - Oral pain [None]
  - Pain in extremity [None]
  - Skin exfoliation [None]
  - Pain of skin [None]
  - Hyperkeratosis [Not Recovered/Not Resolved]
  - Dry skin [Recovering/Resolving]
  - Impaired healing [Not Recovered/Not Resolved]
